FAERS Safety Report 5374134-1 (Version None)
Quarter: 2007Q2

REPORT INFORMATION
  Report Type: 
  Country: None (occurrence: None)
  Receive Date: 20070627
  Receipt Date: 20070613
  Transmission Date: 20071010
  Serious: Yes (Hospitalization)
  Sender: FDA-Public Use
  Company Number: 02100-EUR-07-0074

PATIENT
  Sex: Male

DRUGS (11)
  1. CILOSTAZOL [Suspect]
     Indication: ARTERIAL DISORDER
     Dosage: 200 MG, ORAL
     Route: 048
     Dates: start: 20070228, end: 20070410
  2. ACETYLSALICYLIC ACID, DIPYRIDAMOLE [Concomitant]
  3. THEOPHYLLINE [Concomitant]
  4. MELPERONE HYDROCHLORIDE [Concomitant]
  5. BUDESONIDE W/FORMOTEROL FUMARATE [Concomitant]
  6. CLOPIDOGREL BISULFATE [Concomitant]
  7. VENLAFAXINE HCL [Concomitant]
  8. ESOMEPRAZOLE MAGNESIUM [Concomitant]
  9. RAMIPRIL-HYDROCHLOROTHIAZIDE [Concomitant]
  10. SIMVASTATIN [Concomitant]
  11. TIOTROPIUM BROMIDE [Concomitant]

REACTIONS (1)
  - LEFT VENTRICULAR FAILURE [None]
